FAERS Safety Report 4425388-7 (Version None)
Quarter: 2004Q3

REPORT INFORMATION
  Report Type: 
  Country: None (occurrence: None)
  Receive Date: 20040813
  Receipt Date: 20040525
  Transmission Date: 20050211
  Serious: Yes (Disabling)
  Sender: FDA-Public Use
  Company Number: JP-GLAXOSMITHKLINE-B0333960A

PATIENT
  Age: 22 Year
  Sex: Male
  Weight: 53 kg

DRUGS (7)
  1. PAXIL [Suspect]
     Indication: DEPRESSION
     Route: 048
     Dates: start: 20040428, end: 20040524
  2. GASMOTIN [Concomitant]
     Indication: GASTRITIS
     Dosage: 15MG PER DAY
     Route: 048
     Dates: start: 20040329
  3. LENDORM [Concomitant]
     Indication: INSOMNIA
     Dosage: .25MG UNKNOWN
     Route: 048
     Dates: start: 20040329
  4. DEPAS [Concomitant]
     Indication: ANXIETY
     Dosage: .5MG PER DAY
     Route: 048
     Dates: start: 20040329, end: 20040423
  5. DEPAS [Concomitant]
     Dosage: 1.5MG PER DAY
     Route: 048
     Dates: start: 20040424
  6. TOLEDOMIN [Concomitant]
     Indication: DEPRESSION
     Dosage: 30MG PER DAY
     Route: 048
     Dates: end: 20040405
  7. TOLEDOMIN [Concomitant]
     Dosage: 50MG PER DAY
     Route: 048
     Dates: start: 20040405, end: 20040427

REACTIONS (2)
  - CONDITION AGGRAVATED [None]
  - PROTEIN URINE PRESENT [None]
